FAERS Safety Report 6601756-X (Version None)
Quarter: 2010Q1

REPORT INFORMATION
  Report Type: 
  Country: None (occurrence: None)
  Receive Date: 20100218
  Receipt Date: 20100203
  Transmission Date: 20100710
  Serious: Yes (Hospitalization)
  Sender: FDA-Public Use
  Company Number: 006703

PATIENT
  Sex: Female
  Weight: 98.8 kg

DRUGS (7)
  1. CERTOLIZUMAB PEGOL [Suspect]
     Indication: RHEUMATOID ARTHRITIS
     Dosage: SUBCUTANEOUS
     Route: 058
     Dates: start: 20090701
  2. METHOTREXATE [Concomitant]
  3. PLAQUENIL [Concomitant]
  4. BENAZEPRIL HYDROCHLORIDE [Concomitant]
  5. HYDROCHLOROTHIAZIDE [Concomitant]
  6. FOLIC ACID [Concomitant]
  7. PRILOSEC [Concomitant]

REACTIONS (1)
  - PNEUMONIA [None]
